FAERS Safety Report 8295691-1 (Version None)
Quarter: 2012Q2

REPORT INFORMATION
  Report Type: 
  Country: None (occurrence: None)
  Receive Date: 20120416
  Receipt Date: 20120416
  Transmission Date: 20120825
  Serious: Yes (Other)
  Sender: FDA-Public Use
  Company Number: None

PATIENT
  Age: 47 Year
  Sex: Female
  Weight: 74.5 kg

DRUGS (6)
  1. VALACYCLOVIR [Concomitant]
  2. ADDERALL 5 [Concomitant]
  3. VAGIFEM [Concomitant]
  4. VITAMIN D3 SUPPLEMENT [Concomitant]
  5. GILENYA [Suspect]
     Indication: MULTIPLE SCLEROSIS RELAPSE
     Dosage: 0.5 MG DAILY ORAL
     Route: 048
     Dates: start: 20101209, end: 20120320
  6. VALIUM [Concomitant]

REACTIONS (1)
  - BREAST CANCER [None]
